FAERS Safety Report 15247639 (Version 1)
Quarter: 2018Q3

REPORT INFORMATION
  Report Type: Report from Study
  Country: FR (occurrence: FR)
  Receive Date: 20180807
  Receipt Date: 20180807
  Transmission Date: 20181010
  Serious: Yes (Hospitalization)
  Sender: FDA-Public Use
  Company Number: FR-TEVA-2018-FR-935907

PATIENT
  Age: 70 Year
  Sex: Female

DRUGS (3)
  1. OXALIPLATIN. [Suspect]
     Active Substance: OXALIPLATIN
     Route: 065
     Dates: start: 20170901, end: 20171213
  2. FLUOROURACIL. [Suspect]
     Active Substance: FLUOROURACIL
     Dosage: CYCLIC (EVERY 14 DAYS)
     Route: 065
     Dates: start: 20170901, end: 20171229
  3. OCTREOTIDE ACETATE. [Suspect]
     Active Substance: OCTREOTIDE ACETATE
     Dosage: CYCLIC (EVERY 28 DAYS)
     Route: 065
     Dates: start: 20170510, end: 20171230

REACTIONS (2)
  - General physical health deterioration [Not Recovered/Not Resolved]
  - Thrombocytopenia [Recovered/Resolved]

NARRATIVE: CASE EVENT DATE: 20171213
